FAERS Safety Report 17428998 (Version 14)
Quarter: 2022Q1

REPORT INFORMATION
  Report Type: Report from Study
  Country: US (occurrence: US)
  Receive Date: 20200217
  Receipt Date: 20220323
  Transmission Date: 20220423
  Serious: Yes (Other)
  Sender: FDA-Public Use
  Company Number: US-NOVARTISPH-NVSC2020US043931

PATIENT
  Age: 67 Year
  Sex: Male

DRUGS (2)
  1. MAYZENT [Suspect]
     Active Substance: SIPONIMOD
     Indication: Multiple sclerosis
     Dosage: 2 MG, QD
     Route: 048
     Dates: start: 20200203
  2. MAYZENT [Suspect]
     Active Substance: SIPONIMOD
     Dosage: 2 MG/KG, QD
     Route: 048
     Dates: start: 20200210

REACTIONS (19)
  - COVID-19 [Recovered/Resolved]
  - Cough [Recovering/Resolving]
  - Oropharyngeal pain [Recovering/Resolving]
  - Multiple sclerosis pseudo relapse [Unknown]
  - Multiple sclerosis relapse [Unknown]
  - Muscular weakness [Recovering/Resolving]
  - Renal impairment [Unknown]
  - Balance disorder [Recovered/Resolved]
  - Blood pressure decreased [Recovered/Resolved]
  - Dry eye [Unknown]
  - Eye disorder [Unknown]
  - Hypercapnia [Unknown]
  - Dyspnoea [Unknown]
  - Pain [Unknown]
  - Total lung capacity decreased [Unknown]
  - Dizziness [Recovered/Resolved]
  - Blood pressure increased [Unknown]
  - Heart rate decreased [Recovered/Resolved]
  - Product dose omission in error [Unknown]

NARRATIVE: CASE EVENT DATE: 20200213
